FAERS Safety Report 7560200-9 (Version None)
Quarter: 2011Q2

REPORT INFORMATION
  Report Type: 
  Country: None (occurrence: None)
  Receive Date: 20110621
  Receipt Date: 20110613
  Transmission Date: 20111010
  Serious: Yes (Other)
  Sender: FDA-Public Use
  Company Number: B0726759A

PATIENT

DRUGS (4)
  1. ZANTAC [Suspect]
     Route: 065
  2. ORGADRONE [Concomitant]
  3. TAXOL [Concomitant]
  4. DECADRON [Concomitant]

REACTIONS (3)
  - VASCULITIS [None]
  - ANGIOPATHY [None]
  - WRONG TECHNIQUE IN DRUG USAGE PROCESS [None]
